FAERS Safety Report 7206933-5 (Version None)
Quarter: 2011Q1

REPORT INFORMATION
  Report Type: 
  Country: None (occurrence: None)
  Receive Date: 20110103
  Receipt Date: 20101223
  Transmission Date: 20110831
  Serious: Yes (Death)
  Sender: FDA-Public Use
  Company Number: A0900079A

PATIENT
  Age: 60 Year
  Sex: Male

DRUGS (2)
  1. PROMACTA [Suspect]
     Indication: IDIOPATHIC THROMBOCYTOPENIC PURPURA
     Dosage: 50MG PER DAY
     Route: 048
     Dates: start: 20100712, end: 20100720
  2. CYCLOSPORINE [Concomitant]
     Dates: start: 20100510, end: 20100623

REACTIONS (1)
  - RESPIRATORY FAILURE [None]
